FAERS Safety Report 14363264 (Version 1)
Quarter: 2018Q1

REPORT INFORMATION
  Report Type: Spontaneous
  Country: US (occurrence: US)
  Receive Date: 20180105
  Receipt Date: 20180105
  Transmission Date: 20180509
  Serious: No
  Sender: FDA-Public Use
  Company Number: None

PATIENT
  Age: 70 Year
  Sex: Male

DRUGS (1)
  1. STIVARGA [Suspect]
     Active Substance: REGORAFENIB
     Indication: COLON CANCER
     Dosage: 160 MG ONCE A DAY FOR 21 DAYS OF A 28 DAYS CYCLE BY MOUTH
     Route: 048
     Dates: start: 20171206

REACTIONS (1)
  - Hypertension [None]

NARRATIVE: CASE EVENT DATE: 20180101
